FAERS Safety Report 18394418 (Version 2)
Quarter: 2020Q4

REPORT INFORMATION
  Report Type: Spontaneous
  Country: CA (occurrence: CA)
  Receive Date: 20201016
  Receipt Date: 20201028
  Transmission Date: 20210114
  Serious: Yes (Life-Threatening, Hospitalization)
  Sender: FDA-Public Use
  Company Number: NVSC2020CA278152

PATIENT
  Age: 16 Year
  Sex: Male

DRUGS (14)
  1. SIMULECT [Suspect]
     Active Substance: BASILIXIMAB
     Indication: IMMUNOSUPPRESSANT DRUG THERAPY
  2. BASILIXIMAB [Suspect]
     Active Substance: BASILIXIMAB
     Indication: IMMUNOSUPPRESSANT DRUG THERAPY
     Dosage: 12 MG/M2
     Route: 065
  3. SIMULECT [Suspect]
     Active Substance: BASILIXIMAB
     Indication: RENAL TRANSPLANT
     Dosage: 12 MG/M2, UNKNOWN
     Route: 065
  4. MYCOPHENOLATE MOFETIL. [Suspect]
     Active Substance: MYCOPHENOLATE MOFETIL
     Indication: IMMUNOSUPPRESSANT DRUG THERAPY
     Dosage: 500 MG, Q12H
     Route: 065
  5. DIPHENHYDRAMINE. [Concomitant]
     Active Substance: DIPHENHYDRAMINE
     Indication: PREMEDICATION
     Dosage: UNK
     Route: 065
  6. TACROLIMUS. [Suspect]
     Active Substance: TACROLIMUS
     Indication: IMMUNOSUPPRESSANT DRUG THERAPY
     Dosage: UNK
     Route: 065
  7. PREDNISONE. [Suspect]
     Active Substance: PREDNISONE
     Indication: IMMUNOSUPPRESSANT DRUG THERAPY
     Dosage: 10 MG, QD(1 EVERY 1 DAY)
     Route: 048
  8. AMPHOTERICINE B, LIPOSOME [Suspect]
     Active Substance: AMPHOTERICIN B
     Indication: MUCORMYCOSIS
     Dosage: 5 MG/KG, QD
     Route: 042
  9. POSACONAZOLE [Concomitant]
     Active Substance: POSACONAZOLE
     Indication: PREMEDICATION
     Dosage: 300 MG, QD(1 EVER 1 DAY)
     Route: 065
  10. AMPHOTERICINE B, LIPOSOME [Suspect]
     Active Substance: AMPHOTERICIN B
     Indication: FUNGAL INFECTION
     Dosage: UNK
     Route: 041
  11. MYCOPHENOLATE MOFETIL. [Suspect]
     Active Substance: MYCOPHENOLATE MOFETIL
     Dosage: 1000 MG, QD
     Route: 065
  12. ACETAMINOPHEN. [Concomitant]
     Active Substance: ACETAMINOPHEN
     Indication: PREMEDICATION
     Dosage: UNK
     Route: 065
  13. MYCOPHENOLATE MOFETIL. [Suspect]
     Active Substance: MYCOPHENOLATE MOFETIL
     Indication: RENAL TRANSPLANT
     Dosage: 750 MG, Q12H
     Route: 065
  14. METHYLPREDNISOLONE. [Suspect]
     Active Substance: METHYLPREDNISOLONE
     Indication: IMMUNOSUPPRESSANT DRUG THERAPY
     Dosage: 2.5 MG/KG, Q6H
     Route: 065

REACTIONS (17)
  - Flushing [Recovered/Resolved]
  - Renal tubular necrosis [Recovered/Resolved]
  - Cellulitis [Recovered/Resolved]
  - Mucormycosis [Recovered/Resolved]
  - Graft complication [Recovered/Resolved]
  - Skin infection [Recovered/Resolved]
  - Tachycardia [Recovered/Resolved]
  - Device related infection [Recovered/Resolved]
  - Overdose [Recovered/Resolved]
  - Polyomavirus-associated nephropathy [Recovered/Resolved]
  - Hypotension [Recovered/Resolved]
  - Hyperglycaemia [Recovered/Resolved]
  - Chest discomfort [Recovered/Resolved]
  - Fungal skin infection [Recovered/Resolved]
  - Nephropathy toxic [Recovered/Resolved]
  - Renal injury [Recovered/Resolved]
  - Skin necrosis [Recovered/Resolved]
